FAERS Safety Report 4745189-X (Version None)
Quarter: 2005Q3

REPORT INFORMATION
  Report Type: 
  Country: None (occurrence: None)
  Receive Date: 20050815
  Receipt Date: 20050805
  Transmission Date: 20060218
  Serious: Yes (Hospitalization)
  Sender: FDA-Public Use
  Company Number: BR-ROCHE-413411

PATIENT
  Age: 54 Year
  Sex: Male

DRUGS (2)
  1. XELODA [Suspect]
     Indication: COLON NEOPLASM
     Dosage: INTERMITTANT THERAPY OF 14 DAYS THERAPY FOLLOWED BY 7 DAYS REST.
     Route: 048
     Dates: start: 20050713
  2. XELODA [Suspect]
     Dosage: INTERMITTANT THERAPY OF 14 DAYS TREATMENT FOLLOWED BY 7 DAYS REST.
     Route: 048
     Dates: start: 20050622, end: 20050705

REACTIONS (9)
  - ABDOMINAL DISTENSION [None]
  - ABDOMINAL PAIN [None]
  - APHAGIA [None]
  - DIARRHOEA [None]
  - GASTROINTESTINAL OEDEMA [None]
  - HAEMOGLOBIN DECREASED [None]
  - ILEAL ULCER [None]
  - LEUKOCYTOSIS [None]
  - VOMITING [None]
